APPROVED DRUG PRODUCT: AMIODARONE HYDROCHLORIDE
Active Ingredient: AMIODARONE HYDROCHLORIDE
Strength: 400MG
Dosage Form/Route: TABLET;ORAL
Application: A078578 | Product #003 | TE Code: AB
Applicant: RUBICON RESEARCH LTD
Approved: Feb 26, 2021 | RLD: No | RS: No | Type: RX